FAERS Safety Report 19953908 (Version 3)
Quarter: 2021Q4

REPORT INFORMATION
  Report Type: Spontaneous
  Country: US (occurrence: US)
  Receive Date: 20211014
  Receipt Date: 20211114
  Transmission Date: 20220303
  Serious: Yes (Other)
  Sender: FDA-Public Use
  Company Number: US-BAXTER-2021BAX032091

PATIENT
  Sex: Female

DRUGS (1)
  1. ARTISS [Suspect]
     Active Substance: FIBRINOGEN HUMAN\THROMBIN HUMAN
     Indication: Face lift
     Route: 065
     Dates: start: 202108, end: 202108

REACTIONS (4)
  - Corynebacterium infection [Recovered/Resolved]
  - Abscess bacterial [Recovered/Resolved]
  - SARS-CoV-2 test positive [Unknown]
  - Fibrosis [Unknown]
